FAERS Safety Report 18445569 (Version 4)
Quarter: 2021Q2

REPORT INFORMATION
  Report Type: Spontaneous
  Country: US (occurrence: US)
  Receive Date: 20201030
  Receipt Date: 20210601
  Transmission Date: 20210717
  Serious: Yes (Hospitalization, Other)
  Sender: FDA-Public Use
  Company Number: US-PFIZER INC-2020419917

PATIENT
  Age: 84 Year
  Sex: Female

DRUGS (1)
  1. XELJANZ XR [Suspect]
     Active Substance: TOFACITINIB CITRATE
     Dosage: 11 MG
     Dates: start: 202010

REACTIONS (6)
  - Sepsis [Unknown]
  - Joint swelling [Unknown]
  - Rheumatoid arthritis [Unknown]
  - Condition aggravated [Unknown]
  - Fall [Unknown]
  - Anal incontinence [Unknown]

NARRATIVE: CASE EVENT DATE: 20201022
